FAERS Safety Report 8889711 (Version 1)
Quarter: 2012Q4

REPORT INFORMATION
  Report Type: 
  Country: GB (occurrence: GB)
  Receive Date: 20121107
  Receipt Date: 20121107
  Transmission Date: 20130627
  Serious: Yes (Hospitalization)
  Sender: FDA-Public Use
  Company Number: PHHY2012GB099824

PATIENT
  Age: 30 Year
  Sex: Male

DRUGS (1)
  1. VENLAFAXINE [Suspect]
     Indication: DEPRESSION
     Dosage: 150 mg, QD
     Route: 048

REACTIONS (18)
  - Hypertriglyceridaemia [Recovered/Resolved]
  - Systemic inflammatory response syndrome [Recovering/Resolving]
  - Acute respiratory distress syndrome [Recovered/Resolved]
  - Lung disorder [Recovered/Resolved]
  - Atelectasis [Recovered/Resolved]
  - Pleural effusion [Recovered/Resolved]
  - Pulmonary oedema [Recovered/Resolved]
  - Pancreatitis acute [Recovered/Resolved]
  - Gastrointestinal sounds abnormal [Recovered/Resolved]
  - Peripancreatic fluid collection [Recovered/Resolved]
  - Abdominal pain [Recovered/Resolved]
  - Oedematous pancreatitis [Recovered/Resolved]
  - Vomiting [Recovered/Resolved]
  - Tachycardia [Recovered/Resolved]
  - Abdominal distension [Recovered/Resolved]
  - Abdominal tenderness [Recovered/Resolved]
  - Tachypnoea [Recovered/Resolved]
  - Nausea [Recovered/Resolved]
